FAERS Safety Report 15784809 (Version 1)
Quarter: 2019Q1

REPORT INFORMATION
  Report Type: Spontaneous
  Country: US (occurrence: US)
  Receive Date: 20190103
  Receipt Date: 20190103
  Transmission Date: 20190417
  Serious: No
  Sender: FDA-Public Use
  Company Number: US-009507513-1812USA009447

PATIENT
  Age: 26 Year
  Sex: Female

DRUGS (2)
  1. FOLLISTIM AQ [Suspect]
     Active Substance: FOLLITROPIN
     Indication: INFERTILITY FEMALE
     Dosage: UNK(INJECT AS DIRECTED), ONCE A DAY (STRENGTH: 600 IU/0.72 ML)
     Route: 058
     Dates: start: 20181212
  2. PREGNYL [Suspect]
     Active Substance: CHORIOGONADOTROPIN ALFA
     Indication: INFERTILITY FEMALE
     Dosage: UNK (INJECTED AS DIRECTED), ONCE FOR ONE DAY (STRENGTH: 10,000 MDV)
     Route: 030
     Dates: start: 20181212

REACTIONS (2)
  - Malaise [Unknown]
  - Dizziness [Unknown]

NARRATIVE: CASE EVENT DATE: 20181218
